FAERS Safety Report 7203897-5 (Version None)
Quarter: 2010Q4

REPORT INFORMATION
  Report Type: 
  Country: None (occurrence: None)
  Receive Date: 20101230
  Receipt Date: 20101223
  Transmission Date: 20110411
  Serious: Yes (Hospitalization, Other)
  Sender: FDA-Public Use
  Company Number: ES-PFIZER INC-2010177416

PATIENT
  Age: 65 Year
  Sex: Female

DRUGS (4)
  1. SERTRALINE HYDROCHLORIDE [Suspect]
     Dosage: UNK
  2. LEVETIRACETAM [Suspect]
     Dosage: 750 MG EVERY 8 HOURS
     Route: 048
  3. ENALAPRIL MALEATE [Suspect]
     Dosage: UNK
  4. CLONAZEPAM [Concomitant]
     Dosage: UNK

REACTIONS (6)
  - CONFUSIONAL STATE [None]
  - DEPRESSED LEVEL OF CONSCIOUSNESS [None]
  - DISORIENTATION [None]
  - FALL [None]
  - HYPONATRAEMIA [None]
  - INAPPROPRIATE ANTIDIURETIC HORMONE SECRETION [None]
